FAERS Safety Report 4672626-1 (Version None)
Quarter: 2005Q2

REPORT INFORMATION
  Report Type: 
  Country: None (occurrence: None)
  Receive Date: 20050524
  Receipt Date: 20050225
  Transmission Date: 20051028
  Serious: Yes (Death)
  Sender: FDA-Public Use
  Company Number: US-BRISTOL-MYERS SQUIBB COMPANY-12878732

PATIENT
  Age: 34 Year

DRUGS (2)
  1. CYTOXAN [Suspect]
  2. MESNA [Suspect]

REACTIONS (1)
  - DEATH [None]
